FAERS Safety Report 11132954 (Version 1)
Quarter: 2015Q2

REPORT INFORMATION
  Report Type: Spontaneous
  Country: US (occurrence: None)
  Receive Date: 20150521
  Receipt Date: 20150521
  Transmission Date: 20150821
  Serious: Yes (Disabling)
  Sender: FDA-Public Use
  Company Number: None

PATIENT
  Age: 73 Year
  Sex: Male
  Weight: 97.52 kg

DRUGS (9)
  1. ZANTAC [Concomitant]
     Active Substance: RANITIDINE HYDROCHLORIDE
  2. ZINC [Concomitant]
     Active Substance: ZINC\ZINC CHLORIDE
  3. FISH OIL [Concomitant]
     Active Substance: FISH OIL
  4. BELSOMRA [Suspect]
     Active Substance: SUVOREXANT
     Indication: INSOMNIA
     Dosage: 1 PILL
     Route: 048
     Dates: start: 20150519, end: 20150520
  5. BELSOMRA [Suspect]
     Active Substance: SUVOREXANT
     Indication: SLEEP APNOEA SYNDROME
     Dosage: 1 PILL
     Route: 048
     Dates: start: 20150519, end: 20150520
  6. LIPICHOL PLUS [Concomitant]
  7. AVALIDE [Concomitant]
     Active Substance: HYDROCHLOROTHIAZIDE\IRBESARTAN
  8. PROTONIX [Concomitant]
     Active Substance: PANTOPRAZOLE SODIUM
  9. FLAXSEED [Concomitant]
     Active Substance: FLAX SEED

REACTIONS (8)
  - Asthenia [None]
  - Agitation [None]
  - Insomnia [None]
  - Dyspnoea [None]
  - Impaired driving ability [None]
  - Abnormal behaviour [None]
  - Aggression [None]
  - Irritability [None]

NARRATIVE: CASE EVENT DATE: 20150520
